FAERS Safety Report 5879807-X (Version None)
Quarter: 2008Q3

REPORT INFORMATION
  Report Type: 
  Country: None (occurrence: None)
  Receive Date: 20080912
  Receipt Date: 20080905
  Transmission Date: 20090109
  Serious: Yes (Other)
  Sender: FDA-Public Use
  Company Number: US-JNJCH-2008023205

PATIENT
  Age: 16 Year
  Sex: Male
  Weight: 63.5 kg

DRUGS (1)
  1. COOL MINT LISTERINE [Suspect]
     Indication: ALCOHOL USE
     Dosage: TEXT:A CAPFUL ONCE A DAY
     Route: 048
     Dates: start: 20080829, end: 20080831

REACTIONS (2)
  - INTENTIONAL DRUG MISUSE [None]
  - VOMITING [None]
